FAERS Safety Report 4948574-6 (Version None)
Quarter: 2006Q1

REPORT INFORMATION
  Report Type: 
  Country: None (occurrence: None)
  Receive Date: 20060320
  Receipt Date: 20030605
  Transmission Date: 20060701
  Serious: Yes (Disabling)
  Sender: FDA-Public Use
  Company Number: US-MERCK-0306USA00865

PATIENT
  Age: 56 Year
  Sex: Male
  Weight: 95 kg

DRUGS (8)
  1. VIOXX [Suspect]
     Indication: MONARTHRITIS
     Route: 048
     Dates: start: 20000601, end: 20041001
  2. VIOXX [Suspect]
     Route: 048
     Dates: start: 20000601, end: 20041001
  3. VIOXX [Suspect]
     Route: 048
     Dates: start: 20000601, end: 20041001
  4. VIOXX [Suspect]
     Route: 048
     Dates: start: 20000601, end: 20041001
  5. VIOXX [Suspect]
     Indication: ARTHRALGIA
     Route: 048
     Dates: start: 20000601, end: 20041001
  6. VIOXX [Suspect]
     Route: 048
     Dates: start: 20000601, end: 20041001
  7. VIOXX [Suspect]
     Route: 048
     Dates: start: 20000601, end: 20041001
  8. VIOXX [Suspect]
     Route: 048
     Dates: start: 20000601, end: 20041001

REACTIONS (17)
  - ARTHRALGIA [None]
  - CARDIAC DISORDER [None]
  - CHEST DISCOMFORT [None]
  - CHEST PAIN [None]
  - DEPRESSION [None]
  - DYSPNOEA [None]
  - EFFUSION [None]
  - HEADACHE [None]
  - HYPERTENSION [None]
  - MUSCLE STRAIN [None]
  - OSTEOARTHRITIS [None]
  - OVERDOSE [None]
  - SKIN LESION [None]
  - SUPERFICIAL INJURY OF EYE [None]
  - THIRST [None]
  - VISION BLURRED [None]
  - WEIGHT INCREASED [None]
